FAERS Safety Report 21985382 (Version 2)
Quarter: 2023Q1

REPORT INFORMATION
  Report Type: Spontaneous
  Country: IT (occurrence: IT)
  Receive Date: 20230213
  Receipt Date: 20230307
  Transmission Date: 20230418
  Serious: Yes (Hospitalization, Other)
  Sender: FDA-Public Use
  Company Number: IT-SA-2023SA044495

PATIENT
  Age: 69 Year
  Sex: Female

DRUGS (6)
  1. ZOLPIDEM TARTRATE [Suspect]
     Active Substance: ZOLPIDEM TARTRATE
     Indication: Insomnia
     Dosage: UNK
  2. ZOLPIDEM TARTRATE [Suspect]
     Active Substance: ZOLPIDEM TARTRATE
     Dosage: 10 MG, QD
  3. ZOLPIDEM TARTRATE [Suspect]
     Active Substance: ZOLPIDEM TARTRATE
     Dosage: UNK (30/40 MG) (INDEPENDENTLY INCREASED THE DOSE)
  4. ZOLPIDEM TARTRATE [Suspect]
     Active Substance: ZOLPIDEM TARTRATE
     Dosage: 15 UNK
  5. ZOLPIDEM TARTRATE [Suspect]
     Active Substance: ZOLPIDEM TARTRATE
     Dosage: UNK, QD (40?50 MG/DAY)
  6. ZOLPIDEM TARTRATE [Suspect]
     Active Substance: ZOLPIDEM TARTRATE
     Dosage: UNK (DOSE REDUCED)

REACTIONS (24)
  - Movement disorder [Recovered/Resolved]
  - Dyskinesia [Recovered/Resolved]
  - Cognitive disorder [Recovered/Resolved]
  - Myoclonus [Recovered/Resolved]
  - Intentional product misuse [Recovered/Resolved]
  - Mixed anxiety and depressive disorder [Recovered/Resolved]
  - Initial insomnia [Recovered/Resolved]
  - Stress [Recovered/Resolved]
  - Anxiety [Recovered/Resolved]
  - Discomfort [Recovered/Resolved]
  - Nausea [Recovered/Resolved]
  - Pain [Recovered/Resolved]
  - Affect lability [Recovered/Resolved]
  - Dyspnoea [Recovered/Resolved]
  - Chest discomfort [Recovered/Resolved]
  - Depressed mood [Recovered/Resolved]
  - Panic attack [Recovered/Resolved]
  - Insomnia [Recovered/Resolved]
  - Condition aggravated [Recovered/Resolved]
  - Cyclothymic disorder [Recovered/Resolved]
  - Emotional disorder [Recovered/Resolved]
  - Agoraphobia [Recovered/Resolved]
  - Personality disorder [Recovered/Resolved]
  - Incorrect product administration duration [Unknown]
